FAERS Safety Report 6928941-1 (Version None)
Quarter: 2010Q3

REPORT INFORMATION
  Report Type: 
  Country: None (occurrence: None)
  Receive Date: 20100812
  Receipt Date: 20100730
  Transmission Date: 20110219
  Serious: Yes (Other)
  Sender: FDA-Public Use
  Company Number: CAP10000332

PATIENT
  Age: 64 Year
  Sex: Female

DRUGS (5)
  1. ACTONEL [Suspect]
     Indication: OSTEOPOROSIS
     Dosage: 35 MG ONCE WEEKLY, ORAL
     Route: 048
     Dates: start: 20020101, end: 20100401
  2. DIDROCAL (ETIDRONATE DISODIUM/CALCIUM CARBONATE CYCLICAL) TABLET, 400/ [Suspect]
     Indication: OSTEOPOROSIS
     Dosage: 1 TABLET, DAILY, ORAL
     Route: 048
  3. ERGOCALCIFEROL [Concomitant]
  4. CALCIUM CITRATE (CALCIUM CITRATE) [Concomitant]
  5. HYDROCHLOROTHIAZIDE [Concomitant]

REACTIONS (5)
  - BONE DENSITY DECREASED [None]
  - MULTIPLE MYELOMA [None]
  - MYELOPROLIFERATIVE DISORDER [None]
  - PERIARTHRITIS [None]
  - WRIST FRACTURE [None]
